FAERS Safety Report 6987479-6 (Version None)
Quarter: 2010Q3

REPORT INFORMATION
  Report Type: 
  Country: None (occurrence: None)
  Receive Date: 20100916
  Receipt Date: 20100909
  Transmission Date: 20110219
  Serious: Yes (Death, Other)
  Sender: FDA-Public Use
  Company Number: PHHY2010GB60744

PATIENT
  Age: 49 Year
  Sex: Male
  Weight: 79 kg

DRUGS (3)
  1. CLOZAPINE [Suspect]
     Dosage: 200 MG/DAY
  2. QUETIAPINE [Concomitant]
  3. ORPHENADRINE CITRATE [Concomitant]

REACTIONS (9)
  - ACUTE HEPATIC FAILURE [None]
  - ANTIPSYCHOTIC DRUG LEVEL INCREASED [None]
  - CARDIOMEGALY [None]
  - HEPATIC NECROSIS [None]
  - INTESTINAL DILATATION [None]
  - LEFT VENTRICULAR HYPERTROPHY [None]
  - LIVER INJURY [None]
  - PULMONARY CONGESTION [None]
  - PULMONARY OEDEMA [None]
